FAERS Safety Report 5061241-6 (Version None)
Quarter: 2006Q3

REPORT INFORMATION
  Report Type: 
  Country: None (occurrence: None)
  Receive Date: 20060720
  Receipt Date: 20060711
  Transmission Date: 20061208
  Serious: Yes (Hospitalization)
  Sender: FDA-Public Use
  Company Number: 2006085894

PATIENT
  Age: 81 Year
  Sex: Female

DRUGS (6)
  1. ALDACTONE [Suspect]
     Dosage: ORAL
     Route: 048
     Dates: end: 20060530
  2. LASIX [Suspect]
     Indication: LEFT VENTRICULAR FAILURE
     Dosage: ORAL
     Route: 048
     Dates: end: 20060530
  3. PREVISCAN (FLUINDIONE) [Concomitant]
  4. AMIODARONE HCL [Concomitant]
  5. DIGOXIN [Concomitant]
  6. FORLAX (MACROGOL) [Concomitant]

REACTIONS (8)
  - BLOOD PRESSURE DECREASED [None]
  - BODY TEMPERATURE DECREASED [None]
  - DEHYDRATION [None]
  - DRUG INTERACTION [None]
  - FALL [None]
  - HYPOKALAEMIA [None]
  - HYPONATRAEMIA [None]
  - LOSS OF CONSCIOUSNESS [None]
